FAERS Safety Report 11652119 (Version 1)
Quarter: 2015Q4

REPORT INFORMATION
  Report Type: Spontaneous
  Country: US (occurrence: None)
  Receive Date: 20151021
  Receipt Date: 20151021
  Transmission Date: 20160304
  Serious: Yes (Other)
  Sender: FDA-Public Use
  Company Number: None

PATIENT
  Age: 43 Year
  Sex: Female
  Weight: 78.47 kg

DRUGS (2)
  1. SYNTHROID [Suspect]
     Active Substance: LEVOTHYROXINE SODIUM
     Indication: GASTROINTESTINAL DISORDER
     Route: 048
     Dates: start: 20150220
  2. LEVOTHYROXINE 88 MCG [Suspect]
     Active Substance: LEVOTHYROXINE
     Indication: HYPOTHYROIDISM
     Route: 048
     Dates: start: 20131205, end: 20150220

REACTIONS (6)
  - Drug intolerance [None]
  - Product substitution issue [None]
  - Therapeutic response decreased [None]
  - Drug ineffective [None]
  - Blood thyroid stimulating hormone abnormal [None]
  - Abdominal pain [None]

NARRATIVE: CASE EVENT DATE: 20150220
